FAERS Safety Report 9579374 (Version 1)
Quarter: 2013Q4

REPORT INFORMATION
  Report Type: Spontaneous
  Country: US (occurrence: US)
  Receive Date: 20131001
  Receipt Date: 20131001
  Transmission Date: 20140711
  Serious: Yes (Hospitalization)
  Sender: FDA-Public Use
  Company Number: US-AMGEN-USASP2013017721

PATIENT
  Age: 47 Year
  Sex: Male

DRUGS (2)
  1. ENBREL [Suspect]
     Indication: RHEUMATOID ARTHRITIS
     Dosage: 50 MG, QWK
     Dates: start: 20011201
  2. HUMIRA [Concomitant]
     Dosage: UNK

REACTIONS (6)
  - Hepatic infection [Recovered/Resolved]
  - Sepsis [Recovered/Resolved]
  - Hepatitis C [Recovered/Resolved]
  - Gastric infection [Recovered/Resolved]
  - Gastroenteritis [Recovered/Resolved]
  - Condition aggravated [Recovered/Resolved]
